FAERS Safety Report 20595808 (Version 1)
Quarter: 2022Q1

REPORT INFORMATION
  Report Type: Spontaneous
  Country: US (occurrence: US)
  Receive Date: 20220315
  Receipt Date: 20220315
  Transmission Date: 20220424
  Serious: Yes (Hospitalization, Other)
  Sender: FDA-Public Use
  Company Number: US-BRISTOL-MYERS SQUIBB COMPANY-BMS-2022-036555

PATIENT
  Age: 55 Year
  Sex: Female
  Weight: 113.38 kg

DRUGS (1)
  1. ORENCIA [Suspect]
     Active Substance: ABATACEPT
     Indication: Rheumatoid arthritis
     Dosage: DOSAGE IS BASED ACCORDING TO HER WEIGHT AND SHE GOES EVERY FOUR WEEKS (Q4WK)
     Route: 042
     Dates: start: 2010

REACTIONS (5)
  - Cervix carcinoma [Unknown]
  - Vulval cancer [Unknown]
  - Medullary thyroid cancer [Unknown]
  - Follicular thyroid cancer [Unknown]
  - Heavy chain disease [Unknown]

NARRATIVE: CASE EVENT DATE: 20150101
